FAERS Safety Report 8132789-2 (Version None)
Quarter: 2012Q1

REPORT INFORMATION
  Report Type: 
  Country: None (occurrence: None)
  Receive Date: 20120207
  Receipt Date: 20120130
  Transmission Date: 20120608
  Serious: Yes (Other)
  Sender: FDA-Public Use
  Company Number: 2012MA000454

PATIENT
  Age: 64 Year
  Sex: Male

DRUGS (9)
  1. ADIZEM-XL [Concomitant]
  2. DOXAZOSIN MESYLATE [Suspect]
     Indication: HYPERTENSION
     Dosage: 4 MG;PO
     Route: 048
  3. EZETIMIBE [Concomitant]
  4. HUMULIN S (INSULIN HUMAN) [Suspect]
  5. ASPIRIN [Concomitant]
  6. LANSOPRAZOLE [Concomitant]
  7. IRBESARTAN [Concomitant]
  8. LANTUS [Suspect]
  9. SILDENAFIL [Concomitant]

REACTIONS (1)
  - HYPOGLYCAEMIA [None]
